FAERS Safety Report 5711871 (Version 2)
Quarter: 2013Q4

REPORT INFORMATION
  Report Type: Spontaneous
  Country: DE (occurrence: DE)
  Receive Date: 20050103
  Receipt Date: 20131118
  Transmission Date: 20140711
  Serious: Yes (Hospitalization)
  Sender: FDA-Public Use
  Company Number: GXKR2004DE00607

PATIENT
  Age: 69 Year
  Sex: Female

DRUGS (3)
  1. AMIODARONE [Suspect]
     Indication: ATRIAL FIBRILLATION
     Dosage: 600 MG DAILY
  2. BISOPROLOL [Interacting]
     Indication: TACHYARRHYTHMIA
     Dosage: 1.25 MG DAILY
  3. BETA-ACETYLDIGOXIN [Interacting]
     Indication: TACHYARRHYTHMIA
     Dosage: 0.1 MG DAILY

REACTIONS (2)
  - Torsade de pointes [Recovered/Resolved]
  - Drug interaction [Recovered/Resolved]
